FAERS Safety Report 8992672 (Version 2)
Quarter: 2013Q1

REPORT INFORMATION
  Report Type: Spontaneous
  Country: IT (occurrence: IT)
  Receive Date: 20130101
  Receipt Date: 20130211
  Transmission Date: 20140127
  Serious: Yes (Hospitalization)
  Sender: FDA-Public Use
  Company Number: IT-MERCK-1212ITA011176

PATIENT
  Age: 85 Year
  Sex: Female

DRUGS (6)
  1. SINVACOR [Suspect]
     Indication: HYPERCHOLESTEROLAEMIA
     Dosage: 40 MG, UNK
     Route: 048
     Dates: start: 20121118, end: 20121201
  2. LANSOPRAZOLE [Concomitant]
     Dosage: 15 MG, UNK, TABLET
     Route: 048
  3. ATENOLOL (+) CHLORTHALIDONE [Concomitant]
     Dosage: HALF TABLET
     Route: 048
  4. ZYLORIC [Concomitant]
     Dosage: 300 MG, UNK
     Route: 048
  5. METOCAL VITAMINA D3 [Concomitant]
     Dosage: 600 MG + 400 IU STRENTH, CHEWABLE TABLET
     Route: 048
  6. LASIX (FUROSEMIDE SODIUM) [Concomitant]
     Dosage: 25 MG, UNK
     Route: 048

REACTIONS (2)
  - Hepatotoxicity [Recovered/Resolved]
  - Rhabdomyolysis [Recovered/Resolved]
